FAERS Safety Report 24680497 (Version 1)
Quarter: 2024Q4

REPORT INFORMATION
  Report Type: Spontaneous
  Country: AU (occurrence: AU)
  Receive Date: 20241129
  Receipt Date: 20241129
  Transmission Date: 20250115
  Serious: Yes (Hospitalization, Other)
  Sender: MERCK
  Company Number: AU-009507513-2411AUS009191

PATIENT
  Sex: Female

DRUGS (1)
  1. KEYTRUDA [Suspect]
     Active Substance: PEMBROLIZUMAB
     Indication: Cervix carcinoma
     Dosage: UNK

REACTIONS (11)
  - Type 2 diabetes mellitus [Unknown]
  - Malignant neoplasm progression [Unknown]
  - Diabetic ketoacidosis [Unknown]
  - Immune-mediated hyperthyroidism [Unknown]
  - Type 1 diabetes mellitus [Unknown]
  - Intermenstrual bleeding [Unknown]
  - Glomerular filtration rate abnormal [Unknown]
  - Iron deficiency anaemia [Unknown]
  - Nausea [Unknown]
  - Vomiting [Unknown]
  - Treatment noncompliance [Unknown]

NARRATIVE: CASE EVENT DATE: 20210201
